FAERS Safety Report 17467896 (Version 1)
Quarter: 2020Q1

REPORT INFORMATION
  Report Type: Spontaneous
  Country: DE (occurrence: DE)
  Receive Date: 20200227
  Receipt Date: 20200227
  Transmission Date: 20200409
  Serious: Yes (Hospitalization, Other)
  Sender: FDA-Public Use
  Company Number: DE-009507513-2004-03-0874

PATIENT
  Age: 58 Year
  Sex: Female
  Weight: 85 kg

DRUGS (4)
  1. PEGINTRON [Suspect]
     Active Substance: PEGINTERFERON ALFA-2B
     Indication: HEPATITIS
     Dosage: DOSE: 120 MCG QWK, DURATION: 3 MONTH(S); FORMULATION: ALSO REPROTED AS SOLUTION FOR INJECTION
     Route: 058
     Dates: start: 20031124, end: 20040301
  2. EUTHYROX [Concomitant]
     Active Substance: LEVOTHYROXINE SODIUM
     Indication: HYPOTHYROIDISM
     Dosage: DOSE: 75 MG QD PO
     Route: 048
  3. REBETOL [Suspect]
     Active Substance: RIBAVIRIN
     Indication: HEPATITIS
     Dosage: 1200 MG QD 3 MONTH(S)
     Route: 048
     Dates: start: 20031124, end: 20040301
  4. AMITRIPTYLINE HYDROCHLORIDE. [Concomitant]
     Active Substance: AMITRIPTYLINE HYDROCHLORIDE
     Dosage: DOSE: 25 MG
     Route: 065

REACTIONS (2)
  - Pneumonia [Not Recovered/Not Resolved]
  - Alveolitis [Not Recovered/Not Resolved]

NARRATIVE: CASE EVENT DATE: 20040301
